FAERS Safety Report 5847931-3 (Version None)
Quarter: 2008Q3

REPORT INFORMATION
  Report Type: 
  Country: None (occurrence: None)
  Receive Date: 20080814
  Receipt Date: 20080804
  Transmission Date: 20090109
  Serious: Yes (Disabling, Other)
  Sender: FDA-Public Use
  Company Number: OMPQ-NO-0808L-0520

PATIENT
  Age: 55 Year
  Sex: Male

DRUGS (1)
  1. OMNIPAQUE 140 [Suspect]
     Indication: DIAGNOSTIC PROCEDURE
     Dosage: 0.5 ML, SINGLE DOSE, INTRAMEDULLAR; SINGLE DOSE
     Route: 030

REACTIONS (12)
  - CERVICAL SPINAL STENOSIS [None]
  - GRIP STRENGTH DECREASED [None]
  - HAND DEFORMITY [None]
  - INCORRECT ROUTE OF DRUG ADMINISTRATION [None]
  - MOTOR DYSFUNCTION [None]
  - PAIN IN EXTREMITY [None]
  - PROCEDURAL PAIN [None]
  - QUADRIPLEGIA [None]
  - SENSORY DISTURBANCE [None]
  - SPINAL CORD DISORDER [None]
  - SPINAL CORD INJURY CERVICAL [None]
  - SPINAL CORD OEDEMA [None]
